FAERS Safety Report 8556789-3 (Version None)
Quarter: 2012Q3

REPORT INFORMATION
  Report Type: 
  Country: None (occurrence: None)
  Receive Date: 20120719
  Receipt Date: 20120713
  Transmission Date: 20120928
  Serious: Yes (Other)
  Sender: FDA-Public Use
  Company Number: 136663

PATIENT
  Age: 24 Year
  Sex: Male

DRUGS (2)
  1. KETAMINE HCL [Suspect]
     Indication: MEDICATION ERROR
  2. KETAMINE HCL [Suspect]
     Indication: DRUG ABUSE

REACTIONS (4)
  - URINARY TRACT INFECTION [None]
  - DRUG ABUSE [None]
  - MEDICATION ERROR [None]
  - QUALITY OF LIFE DECREASED [None]
